FAERS Safety Report 24873724 (Version 1)
Quarter: 2025Q1

REPORT INFORMATION
  Report Type: Spontaneous
  Country: US (occurrence: None)
  Receive Date: 20250122
  Receipt Date: 20250122
  Transmission Date: 20250409
  Serious: Yes (Hospitalization)
  Sender: FDA-CTU
  Company Number: None

PATIENT
  Age: 28 Year
  Sex: Male

DRUGS (4)
  1. REMICADE [Suspect]
     Active Substance: INFLIXIMAB
     Indication: Hidradenitis
     Route: 042
     Dates: start: 202309
  2. SODIUM CHLORIDE [Concomitant]
     Active Substance: SODIUM CHLORIDE
  3. SODIUM CHLORIDE [Suspect]
     Active Substance: SODIUM CHLORIDE
  4. STERILE WATER FOR INJECTION [Concomitant]
     Active Substance: WATER

REACTIONS (2)
  - Hidradenitis [None]
  - Condition aggravated [None]

NARRATIVE: CASE EVENT DATE: 20241230
